FAERS Safety Report 6165912-X (Version None)
Quarter: 2009Q2

REPORT INFORMATION
  Report Type: 
  Country: None (occurrence: None)
  Receive Date: 20090422
  Receipt Date: 20090406
  Transmission Date: 20091009
  Serious: Yes (Other)
  Sender: FDA-Public Use
  Company Number: 8044603

PATIENT
  Sex: Male

DRUGS (1)
  1. XYZAL [Suspect]
     Indication: URTICARIA CHRONIC
     Dosage: 5 MG/D PO
     Route: 048
     Dates: start: 20090316

REACTIONS (2)
  - PULMONARY EMBOLISM [None]
  - VENOUS THROMBOSIS [None]
